FAERS Safety Report 9511106 (Version 2)
Quarter: 2013Q3

REPORT INFORMATION
  Report Type: Spontaneous
  Country: US (occurrence: None)
  Receive Date: 20130905
  Receipt Date: 20130926
  Transmission Date: 20140515
  Serious: Yes (Death)
  Sender: FDA-Public Use
  Company Number: 1308-1128

PATIENT
  Sex: Male

DRUGS (7)
  1. EYLEA (AFLIBERCEPT) (INJECTION) [Suspect]
     Indication: DIABETIC RETINAL OEDEMA
     Dosage: 2 MG, ONCE, INTRAVITREAL
     Dates: start: 20130514, end: 20130514
  2. COREG(CARVEDILOL) [Concomitant]
  3. LIPTOR(ATORVASTATIN) [Concomitant]
  4. VASOTEC(ENALAPRIL) [Concomitant]
  5. LANOXIN(DIGOXIN) [Concomitant]
  6. LASIX(FUROSEMIDE) [Concomitant]
  7. ANBESOL(BENZOCAINE) [Concomitant]

REACTIONS (2)
  - Death [None]
  - Cardiac failure congestive [None]
